FAERS Safety Report 14984992 (Version 1)
Quarter: 2018Q2

REPORT INFORMATION
  Report Type: Spontaneous
  Country: US (occurrence: US)
  Receive Date: 20180607
  Receipt Date: 20180607
  Transmission Date: 20180711
  Serious: No
  Sender: FDA-Public Use
  Company Number: US-SA-2018SA146387

PATIENT
  Age: 46 Year
  Sex: Male

DRUGS (1)
  1. XYZAL ALLERGY 24HR [Suspect]
     Active Substance: LEVOCETIRIZINE DIHYDROCHLORIDE
     Indication: IMMUNE TOLERANCE INDUCTION
     Dosage: UNK UNK, UNK

REACTIONS (2)
  - Nightmare [Unknown]
  - Night sweats [Unknown]
